FAERS Safety Report 5721218-1 (Version None)
Quarter: 2008Q2

REPORT INFORMATION
  Report Type: 
  Country: None (occurrence: None)
  Receive Date: 20080428
  Receipt Date: 20080428
  Transmission Date: 20081010
  Serious: Yes (Hospitalization)
  Sender: FDA-Public Use
  Company Number: None

PATIENT
  Age: 52 Year
  Sex: Male
  Weight: 91.5 kg

DRUGS (2)
  1. PHENOBARBITAL TAB [Suspect]
     Indication: AGITATION
     Dosage: SEE SECTION 5 IV BOLUS
     Route: 040
     Dates: start: 20080419, end: 20080421
  2. PHENOBARBITAL TAB [Suspect]
     Indication: ALCOHOL WITHDRAWAL SYNDROME
     Dosage: SEE SECTION 5 IV BOLUS
     Route: 040
     Dates: start: 20080419, end: 20080421

REACTIONS (1)
  - THROMBOCYTOPENIA [None]
